FAERS Safety Report 9825898 (Version 1)
Quarter: 2013Q4

REPORT INFORMATION
  Report Type: Spontaneous
  Country: US (occurrence: None)
  Receive Date: 20131223
  Receipt Date: 20131223
  Transmission Date: 20140711
  Serious: Yes (Other)
  Sender: FDA-Public Use
  Company Number: 218106LEO

PATIENT
  Age: 82 Year
  Sex: Male

DRUGS (7)
  1. PICATO [Suspect]
     Indication: ACTINIC KERATOSIS
     Dosage: 1 IN 1 D, TOPICAL
     Dates: start: 20120616, end: 20120618
  2. ASPIRIN (ACETYLSALICYLIC ACID) [Concomitant]
  3. TOPROL XL (METOPROLOL SUCCINATE) (100 MILLIGRAM) (METOPROLOL SUCCINATE) [Concomitant]
  4. LIPITOR (ATORVASTATIN CALCIUM) [Concomitant]
  5. HYDROXYCHLOROQUINE SULFATE (HYDROXYCHLOROQUINE SULFATE) (HYDROXYCHLOROQUINE SULFATE) [Concomitant]
  6. NASONEX (MOMETASONE FUROATE) [Concomitant]
  7. MELOXICAM (MELOXICAM) [Concomitant]

REACTIONS (5)
  - Application site erythema [None]
  - Application site burn [None]
  - Application site pruritus [None]
  - Application site vesicles [None]
  - Application site swelling [None]
